FAERS Safety Report 22749282 (Version 6)
Quarter: 2025Q1

REPORT INFORMATION
  Report Type: Spontaneous
  Country: US (occurrence: US)
  Receive Date: 20230725
  Receipt Date: 20250208
  Transmission Date: 20250408
  Serious: Yes (Death, Hospitalization, Other)
  Sender: AVEO PHARMACEUTICALS
  Company Number: US-AVEO ONCOLOGY-2021-AVEO-US003328

PATIENT

DRUGS (25)
  1. FOTIVDA [Suspect]
     Active Substance: TIVOZANIB HYDROCHLORIDE
     Indication: Renal cancer
     Dosage: 1.34 MG, DAILY FOR 21 DAYS ON WITH 7 DAYS OFF (28-DAY CYCLE)
     Route: 048
     Dates: start: 20210415, end: 202111
  2. FOTIVDA [Suspect]
     Active Substance: TIVOZANIB HYDROCHLORIDE
     Dosage: 0.89, DAILY FOR 21 DAYS ON 7 DAYS OFF (28-DAY CYCLE)
     Route: 048
     Dates: start: 202111
  3. TYLENOL [Concomitant]
     Active Substance: ACETAMINOPHEN
  4. ALBUTEROL [Concomitant]
     Active Substance: ALBUTEROL
  5. ELIQUIS [Concomitant]
     Active Substance: APIXABAN
  6. VALIUM [Concomitant]
     Active Substance: DIAZEPAM
  7. DRISDOL [Concomitant]
     Active Substance: ERGOCALCIFEROL
  8. FLONASE [Concomitant]
     Active Substance: FLUTICASONE PROPIONATE
  9. NEURONTIN [Concomitant]
     Active Substance: GABAPENTIN
  10. NEURONTIN [Concomitant]
     Active Substance: GABAPENTIN
  11. DILAUDID [Concomitant]
     Active Substance: HYDROMORPHONE HYDROCHLORIDE
  12. NARCAN [Concomitant]
     Active Substance: NALOXONE HYDROCHLORIDE
     Route: 045
  13. LEVOTHYROXINE SODIUM [Concomitant]
     Active Substance: LEVOTHYROXINE SODIUM
  14. LIDODERM [Concomitant]
     Active Substance: LIDOCAINE
  15. RITALIN [Concomitant]
     Active Substance: METHYLPHENIDATE HYDROCHLORIDE
  16. TOPROL XL [Concomitant]
     Active Substance: METOPROLOL SUCCINATE
  17. REMERON [Concomitant]
     Active Substance: MIRTAZAPINE
  18. VITAMINS [Concomitant]
     Active Substance: VITAMINS
  19. PRILOSEC [Concomitant]
     Active Substance: OMEPRAZOLE MAGNESIUM
  20. MIRALAX [Concomitant]
     Active Substance: POLYETHYLENE GLYCOL 3350
  21. DELTASONE [Concomitant]
     Active Substance: PREDNISONE
  22. SENOKOT [Concomitant]
     Active Substance: SENNOSIDES
  23. ZOLOFT [Concomitant]
     Active Substance: SERTRALINE HYDROCHLORIDE
  24. BACTRIM DS [Concomitant]
     Active Substance: SULFAMETHOXAZOLE\TRIMETHOPRIM
  25. FLOMAX [Concomitant]
     Active Substance: TAMSULOSIN HYDROCHLORIDE

REACTIONS (2)
  - Hospitalisation [Unknown]
  - Renal cancer [Fatal]
